FAERS Safety Report 5415125-1 (Version None)
Quarter: 2007Q3

REPORT INFORMATION
  Report Type: 
  Country: None (occurrence: None)
  Receive Date: 20070815
  Receipt Date: 20070613
  Transmission Date: 20080115
  Serious: No
  Sender: FDA-Public Use
  Company Number: A0656759A

PATIENT
  Sex: Female

DRUGS (9)
  1. COREG CR [Suspect]
     Dosage: 20MG PER DAY
     Route: 048
     Dates: start: 20070525
  2. LISINOPRIL [Concomitant]
  3. ASPIRIN [Concomitant]
  4. VYTORIN [Concomitant]
  5. SPIRONOLACTONE [Concomitant]
  6. INSULIN [Concomitant]
  7. LANTUS [Concomitant]
  8. PLAVIX [Concomitant]
  9. UNSPECIFIED MEDICATION [Concomitant]

REACTIONS (1)
  - DIZZINESS [None]
